FAERS Safety Report 25559961 (Version 1)
Quarter: 2025Q3

REPORT INFORMATION
  Report Type: Report from Study
  Country: JP (occurrence: JP)
  Receive Date: 20250715
  Receipt Date: 20250715
  Transmission Date: 20251021
  Serious: Yes (Other)
  Sender: NOVARTIS
  Company Number: JP-002147023-NVSJ2024JP011825

PATIENT
  Age: 36 Year
  Sex: Female

DRUGS (3)
  1. ELTROMBOPAG OLAMINE [Suspect]
     Active Substance: ELTROMBOPAG OLAMINE
     Indication: Immune thrombocytopenia
     Route: 048
  2. ELTROMBOPAG OLAMINE [Suspect]
     Active Substance: ELTROMBOPAG OLAMINE
     Route: 048
  3. ELTROMBOPAG OLAMINE [Suspect]
     Active Substance: ELTROMBOPAG OLAMINE
     Route: 048

REACTIONS (5)
  - Liver function test increased [Unknown]
  - Platelet count decreased [Recovering/Resolving]
  - Inappropriate schedule of product administration [Recovering/Resolving]
  - Therapeutic product effect incomplete [Recovering/Resolving]
  - Platelet count increased [Not Recovered/Not Resolved]
